FAERS Safety Report 9878651 (Version 1)
Quarter: 2014Q1

REPORT INFORMATION
  Report Type: Spontaneous
  Country: US (occurrence: US)
  Receive Date: 20140206
  Receipt Date: 20140206
  Transmission Date: 20141002
  Serious: No
  Sender: FDA-Public Use
  Company Number: US-ALLERGAN-1312517US

PATIENT
  Sex: Female

DRUGS (3)
  1. BOTOX [Suspect]
     Indication: SKIN WRINKLING
     Dosage: UNK UNK, SINGLE
     Route: 030
     Dates: start: 201305, end: 201305
  2. BOTOX [Suspect]
     Indication: SKIN WRINKLING
  3. BOTOX [Suspect]
     Indication: SKIN WRINKLING

REACTIONS (3)
  - Off label use [Unknown]
  - Injection site swelling [Recovered/Resolved]
  - Drug ineffective [Recovered/Resolved]
